FAERS Safety Report 6566942-6 (Version None)
Quarter: 2010Q1

REPORT INFORMATION
  Report Type: 
  Country: None (occurrence: None)
  Receive Date: 20100202
  Receipt Date: 20100121
  Transmission Date: 20100710
  Serious: Yes (Other)
  Sender: FDA-Public Use
  Company Number: US-SANOFI-AVENTIS-2010SA004739

PATIENT
  Age: 74 Year
  Sex: Female

DRUGS (4)
  1. LANTUS [Suspect]
     Indication: TYPE 2 DIABETES MELLITUS
     Dosage: 15 UNITS IN THE AM AND 10 UNITS IN THE PM
     Route: 058
     Dates: start: 20000101
  2. OPTICLICK [Suspect]
     Indication: TYPE 2 DIABETES MELLITUS
     Dates: start: 20040101
  3. ATENOLOL [Suspect]
     Route: 065
  4. ATENOLOL [Suspect]
     Route: 065
     Dates: start: 20090101

REACTIONS (3)
  - BLOOD GLUCOSE INCREASED [None]
  - RENAL IMPAIRMENT [None]
  - VASCULAR GRAFT [None]
